FAERS Safety Report 9384930 (Version 2)
Quarter: 2013Q4

REPORT INFORMATION
  Report Type: Spontaneous
  Country: US (occurrence: US)
  Receive Date: 20130705
  Receipt Date: 20131007
  Transmission Date: 20140711
  Serious: No
  Sender: FDA-Public Use
  Company Number: US-GLAXOSMITHKLINE-A0970893A

PATIENT
  Age: 31 Year
  Sex: Female
  Weight: 58.57 kg

DRUGS (4)
  1. BENLYSTA [Suspect]
     Indication: SYSTEMIC LUPUS ERYTHEMATOSUS
     Route: 042
     Dates: start: 20120302, end: 20130101
  2. ZEBETA [Concomitant]
     Indication: HEART RATE INCREASED
  3. PREDNISONE [Concomitant]
  4. QVAR [Concomitant]
     Indication: PNEUMONITIS

REACTIONS (3)
  - Rhinorrhoea [Not Recovered/Not Resolved]
  - Influenza [Recovering/Resolving]
  - White blood cell count decreased [Recovering/Resolving]
